FAERS Safety Report 16981187 (Version 4)
Quarter: 2020Q2

REPORT INFORMATION
  Report Type: Report from Study
  Country: US (occurrence: US)
  Receive Date: 20191031
  Receipt Date: 20200521
  Transmission Date: 20200713
  Serious: Yes (Death, Hospitalization)
  Sender: FDA-Public Use
  Company Number: US-ACTELION-A-US2019-190679

PATIENT
  Age: 68 Year
  Sex: Male
  Weight: 72.11 kg

DRUGS (3)
  1. UPTRAVI [Suspect]
     Active Substance: SELEXIPAG
     Indication: PULMONARY ARTERIAL HYPERTENSION
     Dosage: 200 MCG, QD
     Route: 048
     Dates: end: 20191117
  2. UPTRAVI [Suspect]
     Active Substance: SELEXIPAG
     Dosage: 200 MCG, BID
     Route: 048
  3. LETAIRIS [Suspect]
     Active Substance: AMBRISENTAN
     Indication: PULMONARY ARTERIAL HYPERTENSION
     Dosage: UNK
     Route: 065

REACTIONS (8)
  - Oxygen saturation decreased [Unknown]
  - Loss of consciousness [Unknown]
  - Death [Fatal]
  - Lung neoplasm malignant [Unknown]
  - Therapy non-responder [Unknown]
  - Dyspnoea [Unknown]
  - Pulmonary congestion [Unknown]
  - Lung disorder [Unknown]

NARRATIVE: CASE EVENT DATE: 20200410
